FAERS Safety Report 5129538-9 (Version None)
Quarter: 2006Q4

REPORT INFORMATION
  Report Type: 
  Country: None (occurrence: None)
  Receive Date: 20061012
  Receipt Date: 20061002
  Transmission Date: 20070319
  Serious: Yes (Death)
  Sender: FDA-Public Use
  Company Number: 06H-163-0310696-00

PATIENT
  Age: 50 Year
  Sex: Female

DRUGS (1)
  1. SUCCINYLCHOLINE CHLORIDE [Suspect]
     Dosage: INJECTION
     Dates: start: 20060701, end: 20060701

REACTIONS (1)
  - INTENTIONAL OVERDOSE [None]
